FAERS Safety Report 13323027 (Version 2)
Quarter: 2017Q3

REPORT INFORMATION
  Report Type: Spontaneous
  Country: US (occurrence: US)
  Receive Date: 20170309
  Receipt Date: 20170712
  Transmission Date: 20171127
  Serious: No
  Sender: FDA-Public Use
  Company Number: US-ASTRAZENECA-2017SE22402

PATIENT
  Sex: Male
  Weight: 74.8 kg

DRUGS (13)
  1. SYMBICORT [Suspect]
     Active Substance: BUDESONIDE\FORMOTEROL FUMARATE DIHYDRATE
     Indication: DYSPHAGIA
     Dosage: 160/4.5 MCG, ONE PUFF TWO TIMES A DAY
     Route: 055
  2. INSULIN [Concomitant]
     Active Substance: INSULIN NOS
     Indication: DIABETES MELLITUS
  3. SYMBICORT [Suspect]
     Active Substance: BUDESONIDE\FORMOTEROL FUMARATE DIHYDRATE
     Indication: DYSPNOEA
     Dosage: 160/4.5 MCG, ONE PUFF TWO TIMES A DAY
     Route: 055
  4. TYLENOL [Concomitant]
     Active Substance: ACETAMINOPHEN
     Indication: PAIN
     Dosage: 325.0MG UNKNOWN
     Route: 048
     Dates: start: 201506
  5. SYMBICORT [Suspect]
     Active Substance: BUDESONIDE\FORMOTEROL FUMARATE DIHYDRATE
     Indication: DYSPHAGIA
     Dosage: 160/4.5 MCG, ONE PUFF TWO TIMES A DAY
     Route: 055
  6. LOSARTAN. [Concomitant]
     Active Substance: LOSARTAN
     Indication: BLOOD POTASSIUM ABNORMAL
     Route: 048
     Dates: start: 201506
  7. MIRALAX [Concomitant]
     Active Substance: POLYETHYLENE GLYCOL 3350
     Indication: BOWEL MOVEMENT IRREGULARITY
     Dosage: 765 GRAMS IN THE BOTTLE, A LID FULL EVERY MORNING IN COFFEE
     Route: 048
     Dates: start: 201506
  8. BAYER ASPIRIN [Concomitant]
     Active Substance: ASPIRIN
     Indication: PROPHYLAXIS
     Route: 048
     Dates: start: 201506
  9. JANUVIA [Concomitant]
     Active Substance: SITAGLIPTIN PHOSPHATE
     Indication: DIABETES MELLITUS
     Route: 048
  10. SYMBICORT [Suspect]
     Active Substance: BUDESONIDE\FORMOTEROL FUMARATE DIHYDRATE
     Indication: DYSPNOEA
     Dosage: 160/4.5 MCG, ONE PUFF TWO TIMES A DAY
     Route: 055
  11. BACLOFEN. [Concomitant]
     Active Substance: BACLOFEN
     Dosage: TWO TIMES A DAY
     Route: 048
  12. FINASTERIDE. [Concomitant]
     Active Substance: FINASTERIDE
     Route: 048
     Dates: start: 201506
  13. PHAZYME [Concomitant]
     Active Substance: DIMETHICONE 410
     Indication: FLATULENCE
     Route: 048
     Dates: start: 201506

REACTIONS (10)
  - Suffocation feeling [Unknown]
  - General physical health deterioration [Unknown]
  - Off label use [Unknown]
  - Drug dose omission [Unknown]
  - Loss of personal independence in daily activities [Unknown]
  - Product taste abnormal [Unknown]
  - Device issue [Unknown]
  - Limb discomfort [Unknown]
  - Productive cough [Unknown]
  - Fatigue [Unknown]
